FAERS Safety Report 7861587-X (Version None)
Quarter: 2011Q4

REPORT INFORMATION
  Report Type: 
  Country: None (occurrence: None)
  Receive Date: 20111027
  Receipt Date: 20111024
  Transmission Date: 20120403
  Serious: Yes (Hospitalization)
  Sender: FDA-Public Use
  Company Number: DE-SHIRE-SPV1-2011-01317

PATIENT
  Sex: Female

DRUGS (1)
  1. REPLAGAL [Suspect]
     Indication: FABRY'S DISEASE
     Dosage: 10.5 MG, 1X/2WKS
     Route: 041
     Dates: start: 20010101

REACTIONS (1)
  - HEMIPLEGIA [None]
